FAERS Safety Report 4721903-4 (Version None)
Quarter: 2005Q3

REPORT INFORMATION
  Report Type: 
  Country: None (occurrence: None)
  Receive Date: 20050720
  Receipt Date: 20050706
  Transmission Date: 20060218
  Serious: Yes (Hospitalization)
  Sender: FDA-Public Use
  Company Number: 2005FR-00119

PATIENT
  Age: 72 Year
  Sex: Male

DRUGS (12)
  1. ASPIRIN [Suspect]
     Indication: MYOCARDIAL INFARCTION
     Dosage: 75 MG, ORAL
     Route: 048
     Dates: start: 20050602, end: 20050611
  2. CLOPIDOGREL BISULFATE [Concomitant]
  3. ENOXAPARIN SODIUM [Concomitant]
  4. WARFARIN [Concomitant]
  5. INDAPAMIDE [Concomitant]
  6. ENALAPRIL MALEATE [Concomitant]
  7. BUMETANIDE [Concomitant]
  8. DOXAZOSIN [Concomitant]
  9. AMOXICILLIN [Concomitant]
  10. SIMVASTATIN [Concomitant]
  11. RAMIPRIL [Concomitant]
  12. SANDO-K [Concomitant]

REACTIONS (1)
  - MELAENA [None]
